FAERS Safety Report 11645411 (Version 1)
Quarter: 2015Q4

REPORT INFORMATION
  Report Type: Spontaneous
  Country: GB (occurrence: GB)
  Receive Date: 20151020
  Receipt Date: 20151020
  Transmission Date: 20160304
  Serious: Yes (Other)
  Sender: FDA-Public Use
  Company Number: GB-AUROBINDO-AUR-APL-2015-09313

PATIENT
  Age: 77 Year
  Sex: Female

DRUGS (4)
  1. MORPHINE SULFATE. [Concomitant]
     Active Substance: MORPHINE SULFATE
     Indication: PAIN
     Dosage: 5 MG, UNK
     Route: 065
  2. MORPHINE SULFATE. [Concomitant]
     Active Substance: MORPHINE SULFATE
     Dosage: 10 MG, UNK
     Route: 065
  3. MST CONTINUS [Concomitant]
     Active Substance: MORPHINE SULFATE
     Indication: PAIN
     Dosage: 10 MG, UNK
     Route: 065
  4. GABAPENTIN. [Suspect]
     Active Substance: GABAPENTIN
     Indication: PAIN
     Dosage: UNK
     Route: 065

REACTIONS (4)
  - Drug ineffective [Recovered/Resolved]
  - Pain [Recovered/Resolved]
  - Bedridden [Recovered/Resolved]
  - Mobility decreased [Recovered/Resolved]
